FAERS Safety Report 5006425-8 (Version None)
Quarter: 2006Q2

REPORT INFORMATION
  Report Type: 
  Country: None (occurrence: None)
  Receive Date: 20060519
  Receipt Date: 20060502
  Transmission Date: 20061013
  Serious: Yes (Hospitalization)
  Sender: FDA-Public Use
  Company Number: DE-AVENTIS-200611268DE

PATIENT
  Age: 68 Year
  Sex: Female

DRUGS (2)
  1. DOCETAXEL [Suspect]
     Indication: GASTROOESOPHAGEAL CANCER
     Route: 042
     Dates: start: 20060411, end: 20060411
  2. CISPLATIN [Suspect]
     Indication: GASTROOESOPHAGEAL CANCER
     Route: 042
     Dates: start: 20060411, end: 20060411

REACTIONS (4)
  - GASTROINTESTINAL TOXICITY [None]
  - HYPOCALCAEMIA [None]
  - NAUSEA [None]
  - VOMITING [None]
